FAERS Safety Report 25217387 (Version 4)
Quarter: 2025Q2

REPORT INFORMATION
  Report Type: Report from Study
  Country: US (occurrence: US)
  Receive Date: 20250420
  Receipt Date: 20250606
  Transmission Date: 20250717
  Serious: Yes (Other)
  Sender: UCB
  Company Number: US-UCBSA-2025022948

PATIENT
  Sex: Male

DRUGS (1)
  1. BIMEKIZUMAB [Suspect]
     Active Substance: BIMEKIZUMAB
     Indication: Psoriasis
     Dosage: 320 MILLIGRAM, EV 4 WEEKS
     Route: 058
     Dates: start: 20250314

REACTIONS (6)
  - Erectile dysfunction [Recovered/Resolved]
  - Injection site pain [Recovered/Resolved]
  - Productive cough [Not Recovered/Not Resolved]
  - Joint swelling [Recovering/Resolving]
  - Peripheral swelling [Not Recovered/Not Resolved]
  - Oral mucosal eruption [Not Recovered/Not Resolved]

NARRATIVE: CASE EVENT DATE: 20250101
